FAERS Safety Report 4940437-5 (Version None)
Quarter: 2006Q1

REPORT INFORMATION
  Report Type: 
  Country: None (occurrence: None)
  Receive Date: 20060131
  Receipt Date: 20051127
  Transmission Date: 20060701
  Serious: No
  Sender: FDA-Public Use
  Company Number: 200520165US

PATIENT
  Age: 50 Year
  Sex: Female

DRUGS (1)
  1. KETEK [Suspect]
     Indication: UPPER RESPIRATORY TRACT INFECTION
     Dosage: 800 MG PO
     Route: 048
     Dates: start: 20051118, end: 20051122

REACTIONS (2)
  - EYELID OEDEMA [None]
  - URTICARIA GENERALISED [None]
